FAERS Safety Report 16624386 (Version 3)
Quarter: 2019Q3

REPORT INFORMATION
  Report Type: Spontaneous
  Country: US (occurrence: US)
  Receive Date: 20190724
  Receipt Date: 20190824
  Transmission Date: 20191004
  Serious: Yes (Death, Life-Threatening, Hospitalization)
  Sender: FDA-Public Use
  Company Number: PHEH2019US030235

PATIENT
  Age: 54 Year
  Sex: Male

DRUGS (7)
  1. METHYLPREDNISOLONE. [Concomitant]
     Active Substance: METHYLPREDNISOLONE
     Indication: PRODUCT USED FOR UNKNOWN INDICATION
     Dosage: UNK
     Route: 065
     Dates: start: 20190709, end: 20190715
  2. FLUDARABINE [Concomitant]
     Active Substance: FLUDARABINE PHOSPHATE
     Indication: CHEMOTHERAPY
     Dosage: UNK
     Route: 065
     Dates: start: 20190615, end: 20190617
  3. PREDNISONE. [Concomitant]
     Active Substance: PREDNISONE
     Indication: PRODUCT USED FOR UNKNOWN INDICATION
     Dosage: UNK
     Route: 065
     Dates: start: 20190716, end: 20190723
  4. DEXAMETHASONE. [Concomitant]
     Active Substance: DEXAMETHASONE
     Indication: PRODUCT USED FOR UNKNOWN INDICATION
     Dosage: UNK
     Route: 065
     Dates: start: 20190705, end: 20190709
  5. CYCLOPHOSPHAMIDE. [Concomitant]
     Active Substance: CYCLOPHOSPHAMIDE
     Indication: CHEMOTHERAPY
     Dosage: UNK
     Route: 065
     Dates: start: 20190615, end: 20190617
  6. KYMRIAH [Suspect]
     Active Substance: TISAGENLECLEUCEL
     Indication: DIFFUSE LARGE B-CELL LYMPHOMA REFRACTORY
     Dosage: UNK
     Route: 065
     Dates: start: 20190620
  7. KEPPRA [Concomitant]
     Active Substance: LEVETIRACETAM
     Indication: CRANIOCEREBRAL INJURY
     Dosage: UNK
     Route: 065

REACTIONS (24)
  - Coagulopathy [Unknown]
  - Lethargy [Unknown]
  - Multiple organ dysfunction syndrome [Unknown]
  - CSF lymphocyte count increased [Unknown]
  - Cytopenia [Unknown]
  - Acute kidney injury [Unknown]
  - Oliguria [Unknown]
  - Hypotension [Unknown]
  - Thrombocytopenia [Unknown]
  - Bacterial test positive [Unknown]
  - Pyrexia [Recovered/Resolved]
  - CSF glucose increased [Unknown]
  - Respiratory tract infection fungal [Unknown]
  - CAR T-cell-related encephalopathy syndrome [Recovered/Resolved]
  - Embolic stroke [Unknown]
  - Diffuse large B-cell lymphoma refractory [Unknown]
  - Malignant neoplasm progression [Unknown]
  - Upper gastrointestinal haemorrhage [Unknown]
  - CSF protein increased [Unknown]
  - Death [Fatal]
  - Facial paralysis [Unknown]
  - Disorientation [Unknown]
  - Cytokine release syndrome [Recovered/Resolved]
  - Mental status changes [Unknown]

NARRATIVE: CASE EVENT DATE: 20190627
